FAERS Safety Report 19772725 (Version 1)
Quarter: 2021Q3

REPORT INFORMATION
  Report Type: Spontaneous
  Country: US (occurrence: US)
  Receive Date: 20210830
  Receipt Date: 20210830
  Transmission Date: 20211014
  Serious: Yes (Death)
  Sender: FDA-Public Use
  Company Number: None

PATIENT
  Age: 85 Year
  Sex: Female

DRUGS (10)
  1. ZYRTEC ALLGY TAB 10MG [Concomitant]
  2. ALCOHOL SWAB PAD [Concomitant]
  3. CENTRUM TAB SILVER [Concomitant]
  4. PROBIOTIC CAP [Concomitant]
  5. TRIAMT/HCTZ TAB 37.5?25 [Concomitant]
  6. ESBRIET [Suspect]
     Active Substance: PIRFENIDONE
     Indication: IDIOPATHIC PULMONARY FIBROSIS
     Route: 048
     Dates: start: 20180109, end: 20210730
  7. PRESERVISION TAB AREDS [Concomitant]
  8. BISOPROL FUM TAB 5MG [Concomitant]
  9. ASPIRIN LOW TAB 81 MG EC [Concomitant]
  10. ALBUTEROL SULFATE. [Suspect]
     Active Substance: ALBUTEROL SULFATE

REACTIONS (1)
  - Death [None]

NARRATIVE: CASE EVENT DATE: 20210730
